FAERS Safety Report 7029432-2 (Version None)
Quarter: 2010Q3

REPORT INFORMATION
  Report Type: 
  Country: None (occurrence: None)
  Receive Date: 20100930
  Receipt Date: 20100906
  Transmission Date: 20110219
  Serious: Yes (Life-Threatening)
  Sender: FDA-Public Use
  Company Number: 2280705-2010-00015

PATIENT
  Age: 34 Year
  Sex: Female
  Weight: 81.6 kg

DRUGS (1)
  1. MENTADENT(R) ADVANCE WHITENING ANTICAVITY FLOURIDE TOOTHPASTE [Suspect]
     Indication: DENTAL DISORDER PROPHYLAXIS
     Dosage: USED TO BRUSH TEETH
     Dates: start: 20100204

REACTIONS (2)
  - HYPERSENSITIVITY [None]
  - NO REACTION ON PREVIOUS EXPOSURE TO DRUG [None]
